FAERS Safety Report 18053016 (Version 1)
Quarter: 2020Q3

REPORT INFORMATION
  Report Type: Spontaneous
  Country: US (occurrence: US)
  Receive Date: 20200720
  Receipt Date: 20200720
  Transmission Date: 20201103
  Serious: Yes (Disabling)
  Sender: FDA-Public Use
  Company Number: None

PATIENT
  Sex: Female
  Weight: 80.29 kg

DRUGS (7)
  1. VIRGIN OLIVE OIL [Concomitant]
  2. ASPIRIN. [Concomitant]
     Active Substance: ASPIRIN
  3. LIPITOR [Suspect]
     Active Substance: ATORVASTATIN CALCIUM
     Indication: BLOOD CHOLESTEROL ABNORMAL
     Dosage: ?          QUANTITY:1 DF DOSAGE FORM;?
     Route: 048
     Dates: start: 201905, end: 202006
  4. KETOTIFEN [Concomitant]
     Active Substance: KETOTIFEN
  5. VITAMIN C [Concomitant]
     Active Substance: ASCORBIC ACID
  6. LOSARTAN. [Concomitant]
     Active Substance: LOSARTAN
  7. FLUOROMETHALONE [Concomitant]

REACTIONS (12)
  - Rhinorrhoea [None]
  - Impaired driving ability [None]
  - Urticaria [None]
  - Fatigue [None]
  - Amnesia [None]
  - Peripheral swelling [None]
  - Cough [None]
  - Dyspnoea [None]
  - Balance disorder [None]
  - Eyelid ptosis [None]
  - Tremor [None]
  - Pruritus [None]
